FAERS Safety Report 9868035 (Version 1)
Quarter: 2014Q1

REPORT INFORMATION
  Report Type: Spontaneous
  Country: US (occurrence: None)
  Receive Date: 20140203
  Receipt Date: 20140203
  Transmission Date: 20141002
  Serious: Yes (Hospitalization)
  Sender: FDA-Public Use
  Company Number: None

PATIENT
  Age: 14 Year
  Sex: Male
  Weight: 58.1 kg

DRUGS (1)
  1. OXYMETAZOLINE NASAL SPRAY [Suspect]
     Indication: HAEMORRHAGE
     Dosage: INTRANASAL -USED TO SOAK NASAL PACKING
     Dates: start: 20140108

REACTIONS (3)
  - Facial bones fracture [None]
  - Pulmonary oedema [None]
  - Bradycardia [None]
